FAERS Safety Report 9716073 (Version 3)
Quarter: 2013Q4

REPORT INFORMATION
  Report Type: Spontaneous
  Country: DE (occurrence: DE)
  Receive Date: 20131127
  Receipt Date: 20131223
  Transmission Date: 20140711
  Serious: Yes (Hospitalization, Other)
  Sender: FDA-Public Use
  Company Number: DE-AMGEN-DEUSP2013083007

PATIENT
  Sex: Female

DRUGS (1)
  1. VECTIBIX [Suspect]
     Indication: PRODUCT USED FOR UNKNOWN INDICATION
     Dosage: UNK
     Route: 065

REACTIONS (3)
  - Pulmonary embolism [Unknown]
  - Oxygen saturation decreased [Unknown]
  - Cardiovascular disorder [Unknown]
